FAERS Safety Report 5598771-4 (Version None)
Quarter: 2008Q1

REPORT INFORMATION
  Report Type: 
  Country: None (occurrence: None)
  Receive Date: 20080122
  Receipt Date: 20080111
  Transmission Date: 20080703
  Serious: Yes (Life-Threatening, Hospitalization)
  Sender: FDA-Public Use
  Company Number: GB-RANBAXY-2008RR-12550

PATIENT

DRUGS (5)
  1. RISPERIDONE 4MG FILM-COATED TABLETS [Suspect]
     Dosage: 4 MG, BID
     Route: 048
  2. CHLORPROMAZINE TABLETS BP 25MG [Concomitant]
     Dosage: 25 MG, QD
     Route: 048
  3. GLICLAZIDE [Concomitant]
     Dosage: 160 MG, QD
     Route: 048
  4. IBUPROFEN [Concomitant]
     Route: 061
  5. METFORMIN 850MG TABLETS [Concomitant]
     Dosage: 850 MG, BID
     Route: 048

REACTIONS (2)
  - ELECTROCARDIOGRAM QT PROLONGED [None]
  - VENTRICULAR TACHYCARDIA [None]
